FAERS Safety Report 24528528 (Version 1)
Quarter: 2024Q4

REPORT INFORMATION
  Report Type: Spontaneous
  Country: CA (occurrence: CA)
  Receive Date: 20241021
  Receipt Date: 20241021
  Transmission Date: 20250115
  Serious: Yes (Death, Hospitalization)
  Sender: STRIDES
  Company Number: CA-STRIDES ARCOLAB LIMITED-2024SP013430

PATIENT
  Sex: Male

DRUGS (10)
  1. PREDNISOLONE [Suspect]
     Active Substance: PREDNISOLONE
     Indication: Rash
     Dosage: 90 MILLIGRAM, QD
     Route: 048
  2. PREDNISOLONE [Suspect]
     Active Substance: PREDNISOLONE
     Dosage: 10 MILLIGRAM, ONCE A WEEK;DOSE TAPERED
     Route: 048
  3. NIVOLUMAB [Suspect]
     Active Substance: NIVOLUMAB
     Indication: Adrenal gland cancer metastatic
     Dosage: 90 MILLIGRAM, CYCLICAL;FOUR CYCLES
     Route: 042
  4. NIVOLUMAB [Suspect]
     Active Substance: NIVOLUMAB
     Indication: Malignant melanoma
     Dosage: 240 MILLIGRAM, CYCLICAL;MAINTENANCE DOSE-ON DAYS ON THE FIRST AND FIFTEENTH DAYS OF A FOUR-WEEK CYCL
     Route: 042
     Dates: start: 202103, end: 202110
  5. NIVOLUMAB [Suspect]
     Active Substance: NIVOLUMAB
     Dosage: 480 MILLIGRAM, CYCLICAL;EVERY FOUR-WEEK CYCLE
     Route: 042
     Dates: start: 202111, end: 202309
  6. IPILIMUMAB [Suspect]
     Active Substance: IPILIMUMAB
     Indication: Adrenal gland cancer metastatic
     Dosage: 250 MILLIGRAM, FOUR CYCLES
     Route: 042
  7. IPILIMUMAB [Suspect]
     Active Substance: IPILIMUMAB
     Indication: Malignant melanoma
  8. PANTOPRAZOLE [Concomitant]
     Active Substance: PANTOPRAZOLE
     Indication: Gastrooesophageal reflux disease
     Dosage: 40 MILLIGRAM, QD
     Route: 048
  9. DIPHENHYDRAMINE [Concomitant]
     Active Substance: DIPHENHYDRAMINE
     Indication: Rash
     Dosage: 50 MILLIGRAM
     Route: 048
  10. NAPROXEN [Concomitant]
     Active Substance: NAPROXEN
     Indication: Procedural pain
     Dosage: UNK
     Route: 065

REACTIONS (1)
  - Sepsis [Fatal]
